FAERS Safety Report 24168654 (Version 1)
Quarter: 2024Q3

REPORT INFORMATION
  Report Type: Spontaneous
  Country: US (occurrence: None)
  Receive Date: 20240802
  Receipt Date: 20240802
  Transmission Date: 20241017
  Serious: No
  Sender: Public
  Company Number: None

PATIENT
  Age: 39 Year
  Sex: Male
  Weight: 78.3 kg

DRUGS (2)
  1. LENVATINIB MESYLATE [Suspect]
     Active Substance: LENVATINIB MESYLATE
     Dates: end: 20240624
  2. PEMBROLIZUMAB [Concomitant]
     Active Substance: PEMBROLIZUMAB
     Dates: end: 20240528

REACTIONS (5)
  - Abdominal pain [None]
  - Diarrhoea [None]
  - Colitis [None]
  - Ischaemia [None]
  - Large intestinal ulcer [None]

NARRATIVE: CASE EVENT DATE: 20240625
